FAERS Safety Report 4555492-4 (Version None)
Quarter: 2005Q1

REPORT INFORMATION
  Report Type: 
  Country: None (occurrence: None)
  Receive Date: 20050118
  Receipt Date: 20050118
  Transmission Date: 20050727
  Serious: No
  Sender: FDA-Public Use
  Company Number: None

PATIENT
  Sex: Female
  Weight: 86.1834 kg

DRUGS (2)
  1. PAXIL [Suspect]
     Indication: ANXIETY
     Dosage: ONCE A DAY
     Dates: start: 20030515, end: 20050114
  2. PAXIL [Suspect]
     Indication: SOCIAL PHOBIA
     Dosage: ONCE A DAY
     Dates: start: 20030515, end: 20050114

REACTIONS (4)
  - ASTHENIA [None]
  - BEDRIDDEN [None]
  - DEPRESSION [None]
  - SUICIDAL IDEATION [None]
